FAERS Safety Report 14958632 (Version 2)
Quarter: 2018Q2

REPORT INFORMATION
  Report Type: Spontaneous
  Country: FR (occurrence: FR)
  Receive Date: 20180531
  Receipt Date: 20180613
  Transmission Date: 20180711
  Serious: Yes (Death, Hospitalization)
  Sender: FDA-Public Use
  Company Number: FR-TEVA-2018-FR-900446

PATIENT
  Age: 50 Year
  Sex: Female
  Weight: 57 kg

DRUGS (3)
  1. FLUOROURACILE PFIZER [Suspect]
     Active Substance: FLUOROURACIL
     Indication: COLON CANCER
     Route: 041
     Dates: start: 20130910, end: 20130912
  2. FLUOROURACILE PFIZER [Suspect]
     Active Substance: FLUOROURACIL
     Dosage: 400 MG / M2 ACID 10 MIN AND IVL
     Route: 040
     Dates: start: 20130910, end: 20130910
  3. OXALIPLATIN INJECTION 50MG/10 ML+100MG/20ML [Suspect]
     Active Substance: OXALIPLATIN
     Indication: COLON CANCER
     Dosage: 85 MG/M2 EN PERF IV SUR 2H
     Route: 041
     Dates: start: 20130910, end: 20130910

REACTIONS (5)
  - Stress cardiomyopathy [Fatal]
  - Dyspnoea [Fatal]
  - Acute coronary syndrome [Fatal]
  - Chest pain [Fatal]
  - Acute pulmonary oedema [Fatal]

NARRATIVE: CASE EVENT DATE: 20130913
